FAERS Safety Report 24243895 (Version 1)
Quarter: 2024Q3

REPORT INFORMATION
  Report Type: Spontaneous
  Country: JP (occurrence: JP)
  Receive Date: 20240823
  Receipt Date: 20240823
  Transmission Date: 20241017
  Serious: Yes (Death)
  Sender: MERCK
  Company Number: JP-BAYER-2024A116756

PATIENT
  Sex: Male

DRUGS (1)
  1. VERICIGUAT [Suspect]
     Active Substance: VERICIGUAT

REACTIONS (1)
  - Death [Fatal]
